FAERS Safety Report 19684651 (Version 3)
Quarter: 2021Q3

REPORT INFORMATION
  Report Type: Spontaneous
  Country: PL (occurrence: PL)
  Receive Date: 20210811
  Receipt Date: 20210823
  Transmission Date: 20211014
  Serious: Yes (Hospitalization, Other)
  Sender: FDA-Public Use
  Company Number: PL-MYLANLABS-2021M1049333

PATIENT
  Age: 40 Year
  Sex: Female

DRUGS (4)
  1. DARATUMUMAB [Suspect]
     Active Substance: DARATUMUMAB
     Dosage: RECEIVED 8 CYCLES AS PART OF DVD REGIMEN
     Route: 065
     Dates: start: 2015
  2. BORTEZOMIB. [Suspect]
     Active Substance: BORTEZOMIB
     Indication: PLASMA CELL MYELOMA
     Dosage: RECEIVED 8 CYCLES AS PART OF DVD REGIMEN
     Route: 065
     Dates: start: 2015
  3. DEXAMETHASONE. [Suspect]
     Active Substance: DEXAMETHASONE
     Indication: PLASMA CELL MYELOMA
     Dosage: RECEIVED 8 CYCLES AS PART OF DVD REGIMEN
     Route: 065
     Dates: start: 2015
  4. DARATUMUMAB [Suspect]
     Active Substance: DARATUMUMAB
     Indication: PLASMA CELL MYELOMA
     Dosage: 4 WEEK, MAINTENANCE THERAPY
     Route: 065

REACTIONS (2)
  - Plasmablastic lymphoma [Unknown]
  - Anaemia [Unknown]

NARRATIVE: CASE EVENT DATE: 201908
